FAERS Safety Report 9519048 (Version 1)
Quarter: 2013Q3

REPORT INFORMATION
  Report Type: Spontaneous
  Country: US (occurrence: None)
  Receive Date: 20130911
  Receipt Date: 20130911
  Transmission Date: 20140515
  Serious: Yes (Other)
  Sender: FDA-Public Use
  Company Number: None

PATIENT
  Age: 32 Year
  Sex: Female
  Weight: 72.58 kg

DRUGS (2)
  1. QUASENSE [Suspect]
     Indication: CONTRACEPTION
     Route: 048
     Dates: start: 20130616, end: 20130907
  2. AVELOX [Suspect]
     Indication: INFLUENZA
     Route: 048

REACTIONS (11)
  - Depression [None]
  - Muscle spasms [None]
  - Abdominal distension [None]
  - Dysgeusia [None]
  - Tremor [None]
  - Dry mouth [None]
  - Feeling abnormal [None]
  - Chills [None]
  - Panic reaction [None]
  - Product substitution issue [None]
  - Product quality issue [None]
